FAERS Safety Report 8979978 (Version 1)
Quarter: 2012Q4

REPORT INFORMATION
  Report Type: 
  Country: GB (occurrence: GB)
  Receive Date: 20121221
  Receipt Date: 20121221
  Transmission Date: 20130627
  Serious: Yes (Other)
  Sender: FDA-Public Use
  Company Number: PHFR2012GB006468

PATIENT
  Age: 54 Year
  Sex: Female
  Weight: 51.6 kg

DRUGS (4)
  1. ZOLEDRONIC ACID [Suspect]
     Indication: OSTEOPOROSIS
     Dosage: 3 mg, one dose given
     Route: 042
     Dates: start: 20100809, end: 20100809
  2. DENOSUMAB [Suspect]
     Indication: OSTEOPOROSIS
     Dosage: 3 mg, One dose given
     Route: 058
     Dates: start: 20120110, end: 20120110
  3. ADCAL-D3 [Concomitant]
     Dosage: UNK UKN, UNK
  4. FULTIUM [Concomitant]
     Dosage: UNK UKN, UNK

REACTIONS (1)
  - Osteonecrosis of jaw [Recovering/Resolving]
